FAERS Safety Report 19394439 (Version 1)
Quarter: 2021Q2

REPORT INFORMATION
  Report Type: Spontaneous
  Country: US (occurrence: US)
  Receive Date: 20210609
  Receipt Date: 20210609
  Transmission Date: 20210717
  Serious: Yes (Other)
  Sender: FDA-Public Use
  Company Number: US-ABBVIE-21K-163-3936808-00

PATIENT
  Age: 71 Year
  Sex: Male
  Weight: 63.11 kg

DRUGS (3)
  1. PFIZER?BIONTECH COVID?19 VACCINE [Suspect]
     Active Substance: TOZINAMERAN
     Dosage: MANUFACTURER: PFIZER
     Route: 030
     Dates: start: 20210226, end: 20210226
  2. HUMIRA [Suspect]
     Active Substance: ADALIMUMAB
     Indication: CROHN^S DISEASE
     Route: 058
     Dates: start: 201912, end: 20210522
  3. PFIZER?BIONTECH COVID?19 VACCINE [Suspect]
     Active Substance: TOZINAMERAN
     Indication: COVID-19 IMMUNISATION
     Dosage: MANUFACTURER: PFIZER
     Route: 030
     Dates: start: 20210205, end: 20210205

REACTIONS (2)
  - Cardiomyopathy [Not Recovered/Not Resolved]
  - Cardiac failure [Not Recovered/Not Resolved]

NARRATIVE: CASE EVENT DATE: 202105
